FAERS Safety Report 24393438 (Version 2)
Quarter: 2024Q4

REPORT INFORMATION
  Report Type: Report from Study
  Country: US (occurrence: US)
  Receive Date: 20241003
  Receipt Date: 20241009
  Transmission Date: 20250115
  Serious: Yes (Hospitalization)
  Sender: PFIZER
  Company Number: US-PFIZER INC-202400267304

PATIENT
  Age: 35 Year
  Sex: Female

DRUGS (4)
  1. ENCORAFENIB [Suspect]
     Active Substance: ENCORAFENIB
     Indication: Astrocytoma, low grade
     Dosage: 450 MG, DAILY
  2. ENCORAFENIB [Suspect]
     Active Substance: ENCORAFENIB
     Dosage: 75 MG, DAILY
  3. BINIMETINIB [Suspect]
     Active Substance: BINIMETINIB
     Indication: Astrocytoma, low grade
     Dosage: 45 MG, 2X/DAY
  4. BINIMETINIB [Suspect]
     Active Substance: BINIMETINIB
     Dosage: 15 MG, DAILY

REACTIONS (1)
  - Hepatotoxicity [Recovered/Resolved]
